FAERS Safety Report 9416488 (Version 2)
Quarter: 2013Q3

REPORT INFORMATION
  Report Type: Spontaneous
  Country: ES (occurrence: ES)
  Receive Date: 20130724
  Receipt Date: 20130725
  Transmission Date: 20140515
  Serious: Yes (Hospitalization, Other)
  Sender: FDA-Public Use
  Company Number: PHHY2013ES077691

PATIENT
  Sex: Male

DRUGS (2)
  1. EXELON PATCH [Suspect]
     Dosage: 9.5 MG, UNK
     Route: 062
  2. EXELON PATCH [Suspect]
     Dosage: 1 DF, BID (9.5 MG, EVERY 12 HOURS)
     Route: 062
     Dates: start: 20130716, end: 20130719

REACTIONS (9)
  - Pneumonia [Unknown]
  - Pyrexia [Not Recovered/Not Resolved]
  - Asphyxia [Unknown]
  - Cognitive disorder [Unknown]
  - Daydreaming [Unknown]
  - Convulsion [Unknown]
  - Decreased appetite [Unknown]
  - Incorrect drug administration duration [Unknown]
  - Overdose [Unknown]
